FAERS Safety Report 12911533 (Version 1)
Quarter: 2016Q4

REPORT INFORMATION
  Report Type: Spontaneous
  Country: US (occurrence: US)
  Receive Date: 20161102
  Receipt Date: 20161102
  Transmission Date: 20170207
  Serious: Yes (Other)
  Sender: FDA-Public Use
  Company Number: None

PATIENT
  Age: 76 Year
  Sex: Female
  Weight: 56.25 kg

DRUGS (6)
  1. AMLODIPINE [Concomitant]
     Active Substance: AMLODIPINE BESYLATE
  2. SIMVASTATIN. [Concomitant]
     Active Substance: SIMVASTATIN
  3. PROLISEC [Concomitant]
  4. FAMOTIDINE. [Suspect]
     Active Substance: FAMOTIDINE
     Indication: DYSPEPSIA
     Dosage: ?          QUANTITY:1 TABLET(S);?
     Route: 048
     Dates: end: 20161006
  5. TYLENOL [Concomitant]
     Active Substance: ACETAMINOPHEN
  6. ECOTRIN [Concomitant]
     Active Substance: ASPIRIN

REACTIONS (2)
  - Lip swelling [None]
  - Swollen tongue [None]

NARRATIVE: CASE EVENT DATE: 20161007
